FAERS Safety Report 18721207 (Version 1)
Quarter: 2021Q1

REPORT INFORMATION
  Report Type: Spontaneous
  Country: US (occurrence: US)
  Receive Date: 20210109
  Receipt Date: 20210109
  Transmission Date: 20210419
  Serious: Yes (Hospitalization)
  Sender: FDA-Public Use
  Company Number: US-LUPIN PHARMACEUTICALS INC.-2020-11576

PATIENT
  Age: 81 Year
  Sex: Male

DRUGS (3)
  1. ACETAZOLAMIDE. [Suspect]
     Active Substance: ACETAZOLAMIDE
     Indication: METABOLIC ALKALOSIS
     Dosage: UNK
     Route: 065
  2. SODIUM THIOSULFATE [Concomitant]
     Active Substance: SODIUM THIOSULFATE
     Indication: METABOLIC ALKALOSIS
     Dosage: UNK
     Route: 065
  3. POTASSIUM [Suspect]
     Active Substance: POTASSIUM
     Indication: METABOLIC ALKALOSIS
     Dosage: TO MAINTAIN A NORMAL SERUM LEVEL OF 3.6MMOL/L
     Route: 065

REACTIONS (1)
  - Drug ineffective [Unknown]
